FAERS Safety Report 4446023-8 (Version None)
Quarter: 2004Q3

REPORT INFORMATION
  Report Type: 
  Country: None (occurrence: None)
  Receive Date: 20040910
  Receipt Date: 20040909
  Transmission Date: 20050211
  Serious: Yes (Other)
  Sender: FDA-Public Use
  Company Number: US-GLAXOSMITHKLINE-A0525083A

PATIENT
  Age: 42 Year
  Sex: Female

DRUGS (3)
  1. AVANDIA [Suspect]
     Dosage: 4MG TWICE PER DAY
     Route: 048
  2. VOLTAREN [Concomitant]
  3. ENALAPRIL [Concomitant]

REACTIONS (1)
  - HYPOCOAGULABLE STATE [None]
